FAERS Safety Report 24996369 (Version 5)
Quarter: 2025Q4

REPORT INFORMATION
  Report Type: Spontaneous
  Country: US (occurrence: US)
  Receive Date: 20250221
  Receipt Date: 20251114
  Transmission Date: 20260118
  Serious: No
  Sender: PFIZER
  Company Number: US-PFIZER INC-PV202500019854

PATIENT
  Age: 3 Year
  Sex: Male
  Weight: 15.6 kg

DRUGS (3)
  1. GENOTROPIN [Suspect]
     Active Substance: SOMATROPIN
     Indication: Growth hormone deficiency
     Dosage: ALTERNATE 0.7MG WITH 0.8MG, 6X/WK
     Route: 058
     Dates: start: 20241104
  2. GENOTROPIN [Suspect]
     Active Substance: SOMATROPIN
     Dosage: ALTERNATE 0.7MG WITH 0.8MG, 6X/WK
     Route: 058
  3. GENOTROPIN [Suspect]
     Active Substance: SOMATROPIN
     Dosage: 0.8 MG, 6X/WK
     Route: 058
     Dates: start: 20250210

REACTIONS (2)
  - Injection site pain [Unknown]
  - Procedural anxiety [Unknown]
